FAERS Safety Report 13768467 (Version 1)
Quarter: 2017Q3

REPORT INFORMATION
  Report Type: Spontaneous
  Country: US (occurrence: US)
  Receive Date: 20170719
  Receipt Date: 20170719
  Transmission Date: 20171127
  Serious: No
  Sender: FDA-Public Use
  Company Number: US-OTSUKA-2017_008356

PATIENT
  Age: 29 Year
  Sex: Male

DRUGS (1)
  1. REXULTI [Suspect]
     Active Substance: BREXPIPRAZOLE
     Indication: SCHIZOPHRENIA
     Dosage: 3 MG, QD (ONCE DAILY
     Route: 048
     Dates: start: 201703, end: 20170410

REACTIONS (5)
  - Condition aggravated [Unknown]
  - Agitation [Unknown]
  - Hallucination, auditory [Unknown]
  - Anger [Unknown]
  - Off label use [Unknown]
